FAERS Safety Report 4540011-9 (Version None)
Quarter: 2004Q4

REPORT INFORMATION
  Report Type: 
  Country: None (occurrence: None)
  Receive Date: 20041228
  Receipt Date: 20040303
  Transmission Date: 20050328
  Serious: Yes (Hospitalization)
  Sender: FDA-Public Use
  Company Number: JP-ABBOTT-04P-087-0252385-00

PATIENT
  Sex: Male

DRUGS (28)
  1. KALETRA [Suspect]
     Indication: HIV INFECTION
     Route: 048
     Dates: start: 20020613, end: 20030321
  2. KALETRA [Suspect]
     Route: 048
     Dates: start: 20030510
  3. ZIDOVUDINE [Suspect]
     Indication: HIV INFECTION
     Route: 048
     Dates: start: 20020401, end: 20030321
  4. ZIDOVUDINE [Suspect]
     Route: 048
     Dates: start: 20030510
  5. DIDANOSINE [Suspect]
     Indication: HIV INFECTION
     Route: 048
     Dates: start: 20020613, end: 20030321
  6. DIDANOSINE [Suspect]
     Route: 048
     Dates: start: 20030510
  7. LAMIVUDINE [Suspect]
     Indication: HIV INFECTION
     Route: 048
     Dates: start: 20020401, end: 20020612
  8. NELFINAVIR [Suspect]
     Indication: HIV INFECTION
     Route: 048
     Dates: start: 20020401, end: 20020612
  9. LOPERAMIDE HYDROCHLORIDE [Concomitant]
     Indication: DIARRHOEA
     Route: 048
     Dates: start: 20020401
  10. LOPERAMIDE HYDROCHLORIDE [Concomitant]
     Dates: start: 20030522
  11. FAMOTIDINE [Concomitant]
     Indication: GASTRITIS
     Route: 048
     Dates: start: 20020401
  12. FAMOTIDINE [Concomitant]
     Dates: start: 20030522
  13. TANDOSPIRONE CITRATE [Concomitant]
     Indication: NEUROSIS
     Route: 048
     Dates: start: 20020401
  14. TANDOSPIRONE CITRATE [Concomitant]
     Dates: start: 20030619, end: 20030714
  15. MOFEZOLAC [Concomitant]
     Indication: CERVICOBRACHIAL SYNDROME
     Route: 048
     Dates: start: 20020401
  16. MOFEZOLAC [Concomitant]
     Route: 048
     Dates: start: 20030619
  17. MULTIVITAMIN [Concomitant]
     Indication: MALAISE
     Route: 048
     Dates: start: 20020401, end: 20020418
  18. ZOLPIDEM TARTRATE [Concomitant]
     Indication: INSOMNIA
     Route: 048
     Dates: start: 20020401, end: 20020418
  19. FEXOFENADINE HYDROCHLORIDE [Concomitant]
     Indication: SEASONAL ALLERGY
     Route: 048
     Dates: start: 20020401, end: 20020418
  20. NITRAZEPAM [Concomitant]
     Indication: INSOMNIA
     Route: 048
     Dates: start: 20020418, end: 20020605
  21. SODIUM CROMOGLICATE [Concomitant]
     Indication: SEASONAL ALLERGY
     Route: 061
     Dates: start: 20020401, end: 20020418
  22. BROTIZOLAM [Concomitant]
     Indication: INSOMNIA
     Route: 048
     Dates: start: 20020606
  23. BROTIZOLAM [Concomitant]
     Dates: start: 20030522
  24. CANDESARTAN CILEXETIL [Concomitant]
     Indication: HYPERTENSION
     Route: 048
     Dates: start: 20030619, end: 20030719
  25. LOSARTAN POTASSIUM [Concomitant]
     Indication: HYPERTENSION
     Route: 048
     Dates: start: 20030731
  26. MOFEZOLAC [Concomitant]
     Route: 048
     Dates: start: 20030619
  27. TOCOPHERYL NICOTINATE [Concomitant]
     Indication: CERVICOBRACHIAL SYNDROME
     Route: 048
     Dates: start: 20030619
  28. BENZBROMARONE [Concomitant]
     Indication: HYPERURICAEMIA
     Route: 048
     Dates: start: 20030918

REACTIONS (2)
  - EPILEPSY [None]
  - HYPERLIPIDAEMIA [None]
